FAERS Safety Report 12025389 (Version 1)
Quarter: 2016Q1

REPORT INFORMATION
  Report Type: Spontaneous
  Country: US (occurrence: US)
  Receive Date: 20160206
  Receipt Date: 20160206
  Transmission Date: 20160526
  Serious: No
  Sender: FDA-Public Use
  Company Number: US-ABBVIE-15K-163-1482023-00

PATIENT
  Age: 54 Year
  Sex: Male
  Weight: 106.69 kg

DRUGS (1)
  1. HUMIRA [Suspect]
     Active Substance: ADALIMUMAB
     Indication: PITYRIASIS RUBRA PILARIS
     Route: 058
     Dates: end: 20151012

REACTIONS (2)
  - Pityriasis rubra pilaris [Not Recovered/Not Resolved]
  - Liver function test abnormal [Recovered/Resolved]

NARRATIVE: CASE EVENT DATE: 20151012
